FAERS Safety Report 18794627 (Version 1)
Quarter: 2021Q1

REPORT INFORMATION
  Report Type: Spontaneous
  Country: GB (occurrence: GB)
  Receive Date: 20210127
  Receipt Date: 20210127
  Transmission Date: 20210419
  Serious: Yes (Disabling, Congenital Anomaly, Other)
  Sender: FDA-Public Use
  Company Number: GB-MYLANLABS-2021M1004989

PATIENT
  Sex: Female

DRUGS (3)
  1. VALPROIC ACID. [Suspect]
     Active Substance: VALPROIC ACID
     Indication: PRODUCT USED FOR UNKNOWN INDICATION
     Dosage: UNK
     Route: 064
  2. SODIUM VALPROATE [Concomitant]
     Active Substance: VALPROATE SODIUM
     Dosage: UNK
  3. EPILIM [Suspect]
     Active Substance: VALPROATE SODIUM
     Indication: PRODUCT USED FOR UNKNOWN INDICATION
     Dosage: UNK
     Route: 064

REACTIONS (20)
  - Mental disability [Unknown]
  - Illness [Unknown]
  - Speech disorder developmental [Unknown]
  - Speech sound disorder [Unknown]
  - Autism spectrum disorder [Unknown]
  - Hypermobility syndrome [Unknown]
  - Dyspraxia [Unknown]
  - Deafness [Unknown]
  - Cerebral palsy [Unknown]
  - Incontinence [Unknown]
  - Talipes [Unknown]
  - Asthma [Unknown]
  - Foetal anticonvulsant syndrome [Unknown]
  - Physical disability [Unknown]
  - Learning disability [Unknown]
  - Dysmorphism [Unknown]
  - Foetal exposure during pregnancy [Recovered/Resolved]
  - Developmental delay [Unknown]
  - Hyperacusis [Unknown]
  - Epilepsy [Unknown]
